FAERS Safety Report 21315487 (Version 2)
Quarter: 2022Q3

REPORT INFORMATION
  Report Type: Report from Study
  Country: NL (occurrence: NL)
  Receive Date: 20220909
  Receipt Date: 20220916
  Transmission Date: 20221026
  Serious: Yes (Hospitalization)
  Sender: FDA-Public Use
  Company Number: NL-PFIZER INC-PV202200049533

PATIENT
  Age: 74 Year
  Sex: Male
  Weight: 64.4 kg

DRUGS (8)
  1. ENCORAFENIB [Suspect]
     Active Substance: ENCORAFENIB
     Indication: Non-small cell lung cancer
     Dosage: 450 MG, ONCE DAILY CONTINUOUS
     Route: 048
     Dates: start: 20200817, end: 20220809
  2. BINIMETINIB [Suspect]
     Active Substance: BINIMETINIB
     Indication: Non-small cell lung cancer
     Dosage: 45 MG, TWICE DAILY, CONTINUOUS
     Route: 048
     Dates: start: 20200817, end: 20220809
  3. DUTASTERIDE [Concomitant]
     Active Substance: DUTASTERIDE
     Indication: Polyuria
     Dosage: 0.5 MG, 1X/DAY
     Route: 048
     Dates: start: 20200717
  4. TAMSULOSIN [Concomitant]
     Active Substance: TAMSULOSIN
     Indication: Polyuria
     Dosage: 0.4 MG, 1X/DAY
     Route: 048
     Dates: start: 20200717
  5. CARBASPIRIN CALCIUM [Concomitant]
     Active Substance: CARBASPIRIN CALCIUM
     Indication: Angina pectoris
     Dosage: 100 MG, 1X/DAY
     Route: 048
     Dates: start: 2014
  6. PANTOPRAZOLE [Concomitant]
     Active Substance: PANTOPRAZOLE
     Indication: Prophylaxis
     Dosage: 40 MG, 1X/DAY
     Route: 048
     Dates: start: 20200717
  7. METOPROLOL [Concomitant]
     Active Substance: METOPROLOL
     Indication: Angina pectoris
     Dosage: 50 MG, 1X/DAY
     Route: 048
     Dates: start: 2014
  8. TEMAZEPAM [Concomitant]
     Active Substance: TEMAZEPAM
     Indication: Prophylaxis
     Dosage: 10 MG, AS NEEDED
     Route: 048
     Dates: start: 20211230

REACTIONS (1)
  - Cholelithiasis [Recovered/Resolved]

NARRATIVE: CASE EVENT DATE: 20220807
